FAERS Safety Report 21584216 (Version 1)
Quarter: 2022Q4

REPORT INFORMATION
  Report Type: Report from Study
  Country: US (occurrence: US)
  Receive Date: 20221111
  Receipt Date: 20221111
  Transmission Date: 20230113
  Serious: No
  Sender: FDA-Public Use
  Company Number: US-ABBVIE-22K-163-4466990-00

PATIENT
  Sex: Male

DRUGS (4)
  1. SKYRIZI [Suspect]
     Active Substance: RISANKIZUMAB-RZAA
     Indication: Psoriasis
     Dosage: WEEK 0, FORM STRENGTH 150 MG
     Route: 058
     Dates: start: 20220611, end: 20220611
  2. SKYRIZI [Suspect]
     Active Substance: RISANKIZUMAB-RZAA
     Dosage: WEEK 4, FORM STRENGTH 150 MG
     Route: 058
     Dates: start: 202207
  3. OTEZLA [Concomitant]
     Active Substance: APREMILAST
     Indication: Product used for unknown indication
     Dosage: FORM STRENGTH 30 MG
  4. XYREM [Concomitant]
     Active Substance: SODIUM OXYBATE
     Indication: Product used for unknown indication
     Dosage: FORM STRENGTH 150 MILLIGRAMS/MILLILITERS
     Route: 065

REACTIONS (3)
  - Psoriasis [Unknown]
  - Drug ineffective [Not Recovered/Not Resolved]
  - Discomfort [Unknown]
